FAERS Safety Report 20190996 (Version 10)
Quarter: 2022Q2

REPORT INFORMATION
  Report Type: Report from Study
  Country: PL (occurrence: None)
  Receive Date: 20211216
  Receipt Date: 20220606
  Transmission Date: 20220720
  Serious: Yes (Death, Life-Threatening, Hospitalization)
  Sender: FDA-Public Use
  Company Number: PL-ROCHE-2975875

PATIENT
  Age: 46 Year
  Sex: Female
  Weight: 90 kg

DRUGS (17)
  1. OCRELIZUMAB [Suspect]
     Active Substance: OCRELIZUMAB
     Indication: Primary progressive multiple sclerosis
     Dosage: START DATE OF MOST RECENT DOSE OF STUDY DRUG PRIOR TO SAE: 15-NOV-2021 (600 MG)
     Route: 042
     Dates: start: 20200629
  2. VIREGYT K [Concomitant]
     Indication: Fatigue
     Route: 048
     Dates: start: 20190201
  3. VESTIBO [Concomitant]
     Indication: Dizziness
     Route: 048
     Dates: start: 20190201
  4. FIBROTIN [Concomitant]
     Dosage: 1 CAPSULE
     Route: 048
     Dates: start: 20190201
  5. APAP [Concomitant]
     Active Substance: ACETAMINOPHEN
     Indication: Premedication
     Route: 048
     Dates: start: 20211115, end: 20211115
  6. DORMUTIL N [Concomitant]
     Indication: Premedication
     Route: 048
     Dates: start: 20211115, end: 20211115
  7. DORMUTIL N [Concomitant]
     Route: 048
     Dates: start: 20210531, end: 20210531
  8. DORMUTIL N [Concomitant]
     Route: 048
     Dates: start: 20200629, end: 20200629
  9. DORMUTIL N [Concomitant]
     Route: 048
     Dates: start: 20200713, end: 20200713
  10. DORMUTIL N [Concomitant]
     Route: 048
     Dates: start: 20201215, end: 20201215
  11. SOLU-MEDROL [Concomitant]
     Active Substance: METHYLPREDNISOLONE SODIUM SUCCINATE
     Indication: Premedication
     Route: 042
     Dates: start: 20211115, end: 20211115
  12. TIZANIDINE [Concomitant]
     Active Substance: TIZANIDINE
     Route: 048
     Dates: start: 20200713, end: 20200715
  13. CIPROFLOXACIN [Concomitant]
     Active Substance: CIPROFLOXACIN
     Indication: Urinary tract infection
     Route: 048
     Dates: start: 20210406, end: 20210410
  14. METHYLPREDNISOLONE [Concomitant]
     Active Substance: METHYLPREDNISOLONE
     Indication: Premedication
     Route: 042
     Dates: start: 20210531, end: 20210531
  15. METHYLPREDNISOLONE [Concomitant]
     Active Substance: METHYLPREDNISOLONE
     Route: 042
     Dates: start: 20200713, end: 20200713
  16. METHYLPREDNISOLONE [Concomitant]
     Active Substance: METHYLPREDNISOLONE
     Route: 042
     Dates: start: 20201215, end: 20201215
  17. METHYLPREDNISOLONE [Concomitant]
     Active Substance: METHYLPREDNISOLONE
     Route: 042
     Dates: start: 20200629, end: 20200629

REACTIONS (2)
  - COVID-19 pneumonia [Fatal]
  - Renal failure [Not Recovered/Not Resolved]

NARRATIVE: CASE EVENT DATE: 20211204
